FAERS Safety Report 8529681-8 (Version None)
Quarter: 2012Q2

REPORT INFORMATION
  Report Type: 
  Country: None (occurrence: None)
  Receive Date: 20120410
  Receipt Date: 20111221
  Transmission Date: 20120825
  Serious: Yes (Other)
  Sender: FDA-Public Use
  Company Number: 20110862

PATIENT
  Age: 85 Year
  Sex: Female
  Weight: 71 kg

DRUGS (2)
  1. DEXFERRUM [Suspect]
     Indication: IRON DEFICIENCY ANAEMIA
     Dosage: 1ST TEST DOSE
     Dates: start: 20111107
  2. METHYLPREDNISOLONE [Concomitant]

REACTIONS (1)
  - CHEST PAIN [None]
